FAERS Safety Report 10329116 (Version 1)
Quarter: 2014Q3

REPORT INFORMATION
  Report Type: Spontaneous
  Country: US (occurrence: None)
  Receive Date: 20140718
  Receipt Date: 20140718
  Transmission Date: 20150326
  Serious: Yes (Hospitalization)
  Sender: FDA-Public Use
  Company Number: None

PATIENT
  Age: 84 Year
  Sex: Male
  Weight: 95 kg

DRUGS (1)
  1. LEUPROLIDE [Suspect]
     Active Substance: LEUPROLIDE
     Indication: PROSTATE CANCER
     Route: 058
     Dates: start: 20131001, end: 20140506

REACTIONS (6)
  - Cerebral ischaemia [None]
  - Cerebral atrophy [None]
  - Transient ischaemic attack [None]
  - Chest pain [None]
  - Cerebellar infarction [None]
  - Carotid artery stenosis [None]

NARRATIVE: CASE EVENT DATE: 20140506
